FAERS Safety Report 15534843 (Version 1)
Quarter: 2018Q4

REPORT INFORMATION
  Report Type: Spontaneous
  Country: GB (occurrence: GB)
  Receive Date: 20181022
  Receipt Date: 20181022
  Transmission Date: 20190205
  Serious: Yes (Hospitalization)
  Sender: FDA-Public Use
  Company Number: GB-TEVA-2018-GB-966501

PATIENT
  Age: 71 Year
  Weight: 80 kg

DRUGS (4)
  1. VILDAGLIPTIN [Concomitant]
     Active Substance: VILDAGLIPTIN
     Indication: DIABETES MELLITUS
     Route: 065
  2. GLICLAZIDE [Concomitant]
     Active Substance: GLICLAZIDE
     Indication: DIABETES MELLITUS
     Route: 065
  3. FENOFIBRATE. [Concomitant]
     Active Substance: FENOFIBRATE
     Indication: DIABETES MELLITUS
     Route: 065
  4. TRIMETHOPRIM. [Suspect]
     Active Substance: TRIMETHOPRIM
     Indication: URINARY TRACT INFECTION
     Route: 048
     Dates: start: 20180912, end: 20180914

REACTIONS (3)
  - Lip swelling [Recovering/Resolving]
  - Stevens-Johnson syndrome [Recovering/Resolving]
  - Mucosal necrosis [Recovering/Resolving]

NARRATIVE: CASE EVENT DATE: 20180913
